FAERS Safety Report 5140865-1 (Version None)
Quarter: 2006Q4

REPORT INFORMATION
  Report Type: 
  Country: None (occurrence: None)
  Receive Date: 20061026
  Receipt Date: 20061016
  Transmission Date: 20070319
  Serious: Yes (Other)
  Sender: FDA-Public Use
  Company Number: 2006126202

PATIENT

DRUGS (1)
  1. LIPITOR [Suspect]
     Dosage: 80 MG ORAL
     Route: 048

REACTIONS (2)
  - BLOOD CHOLESTEROL INCREASED [None]
  - PHARMACEUTICAL PRODUCT COMPLAINT [None]
